FAERS Safety Report 4937254-9 (Version None)
Quarter: 2006Q1

REPORT INFORMATION
  Report Type: 
  Country: None (occurrence: None)
  Receive Date: 20060309
  Receipt Date: 20060303
  Transmission Date: 20060701
  Serious: Yes (Other)
  Sender: FDA-Public Use
  Company Number: US-NOVOPROD-251303

PATIENT
  Age: 47 Year
  Sex: Male
  Weight: 127 kg

DRUGS (10)
  1. NOVOLIN N INNOLET [Suspect]
     Indication: INSULIN-REQUIRING TYPE II DIABETES MELLITUS
     Dosage: UNK, TID
     Dates: start: 20060214, end: 20060303
  2. PROTONIX [Concomitant]
     Indication: GASTROOESOPHAGEAL REFLUX DISEASE
     Route: 048
  3. XANAX [Concomitant]
     Indication: ANXIETY
     Route: 048
  4. LISINOPRIL [Concomitant]
     Indication: HYPERTENSION
     Route: 048
  5. CYMBALTA [Concomitant]
     Indication: DEPRESSION
     Route: 048
  6. ASPIRIN [Concomitant]
     Indication: ILL-DEFINED DISORDER
     Route: 048
  7. NEUROTON [Concomitant]
     Indication: NEUROPATHY
     Route: 048
  8. COMBIVENT                               /GFR/ [Concomitant]
     Indication: ASTHMA
     Route: 055
  9. ALBUTEROL [Concomitant]
     Indication: ASTHMA
     Route: 055
  10. NOVOLIN R INNOLET [Concomitant]
     Indication: INSULIN-REQUIRING TYPE II DIABETES MELLITUS
     Dosage: UNK, TID
     Dates: start: 20050207, end: 20060213

REACTIONS (7)
  - BLOOD GLUCOSE INCREASED [None]
  - DRUG DISPENSING ERROR [None]
  - FACIAL PALSY [None]
  - HEADACHE [None]
  - MEDICATION ERROR [None]
  - SINUSITIS [None]
  - STOMACH DISCOMFORT [None]
